FAERS Safety Report 9702203 (Version 2)
Quarter: 2013Q4

REPORT INFORMATION
  Report Type: Report from Study
  Country: US (occurrence: ZA)
  Receive Date: 20131121
  Receipt Date: 20131121
  Transmission Date: 20140711
  Serious: Yes (Other)
  Sender: FDA-Public Use
  Company Number: US-MYLANLABS-2013S1025541

PATIENT
  Age: 38 Year
  Sex: Female

DRUGS (3)
  1. STAVUDINE [Suspect]
     Route: 048
     Dates: start: 20120223
  2. ETRAVIRINE [Suspect]
     Route: 048
     Dates: start: 20120223, end: 20130918
  3. LOPINAVIR W/RITONAVIR [Suspect]
     Route: 048
     Dates: start: 20120223

REACTIONS (3)
  - Abortion spontaneous [Recovered/Resolved]
  - Placenta praevia [Recovered/Resolved]
  - Exposure during pregnancy [Recovered/Resolved]
